FAERS Safety Report 7592899-5 (Version None)
Quarter: 2011Q3

REPORT INFORMATION
  Report Type: 
  Country: None (occurrence: None)
  Receive Date: 20110706
  Receipt Date: 20110629
  Transmission Date: 20111222
  Serious: Yes (Other)
  Sender: FDA-Public Use
  Company Number: GB-PFIZER INC-2011146285

PATIENT
  Age: 52 Year
  Sex: Female

DRUGS (10)
  1. MYCOPHENOLATE MOFETIL [Suspect]
     Indication: IMMUNOSUPPRESSION
     Dosage: 500 MG, UNK
  2. TACROLIMUS [Suspect]
     Indication: IMMUNOSUPPRESSION
  3. SIROLIMUS [Suspect]
     Indication: IMMUNOSUPPRESSION
  4. BASILIXIMAB [Suspect]
     Indication: IMMUNOSUPPRESSION
  5. HYDRALAZINE [Concomitant]
  6. TRIMETHOPRIM [Concomitant]
  7. FAMOTIDINE [Concomitant]
  8. SIMVASTATIN [Concomitant]
  9. METOPROLOL [Concomitant]
  10. VALGANCICLOVIR [Concomitant]

REACTIONS (3)
  - FOOT FRACTURE [None]
  - PAIN [None]
  - BONE MARROW OEDEMA [None]
